FAERS Safety Report 5013612-1 (Version None)
Quarter: 2006Q2

REPORT INFORMATION
  Report Type: 
  Country: None (occurrence: None)
  Receive Date: 20060530
  Receipt Date: 20060524
  Transmission Date: 20061013
  Serious: Yes (Hospitalization)
  Sender: FDA-Public Use
  Company Number: US-GLAXOSMITHKLINE-A0607024A

PATIENT
  Age: 18 Year
  Sex: Female
  Weight: 61.4 kg

DRUGS (4)
  1. AUGMENTIN '125' [Suspect]
     Indication: INFECTION PROPHYLAXIS
     Route: 048
     Dates: end: 20060507
  2. MONISTAT 3 [Suspect]
     Indication: FUNGAL INFECTION
     Route: 061
     Dates: start: 20060509, end: 20060509
  3. MONISTAT 3 [Suspect]
     Route: 067
     Dates: start: 20060509, end: 20060509
  4. ALBUTEROL SULFATE AUTOHALER [Concomitant]

REACTIONS (6)
  - BLOOD PRESSURE DECREASED [None]
  - DEHYDRATION [None]
  - DIZZINESS [None]
  - NAUSEA [None]
  - VISION BLURRED [None]
  - VOMITING [None]
